FAERS Safety Report 20833958 (Version 1)
Quarter: 2022Q2

REPORT INFORMATION
  Report Type: Spontaneous
  Country: US (occurrence: US)
  Receive Date: 20220516
  Receipt Date: 20220516
  Transmission Date: 20220721
  Serious: No
  Sender: FDA-Public Use
  Company Number: US-PFIZER INC-202200684582

PATIENT

DRUGS (1)
  1. PAXLOVID [Suspect]
     Active Substance: NIRMATRELVIR\RITONAVIR
     Indication: COVID-19 treatment
     Dosage: UNK

REACTIONS (11)
  - Palpitations [Unknown]
  - Discomfort [Unknown]
  - Hyperhidrosis [Unknown]
  - Pollakiuria [Unknown]
  - Chills [Unknown]
  - Insomnia [Unknown]
  - Chest pain [Unknown]
  - Malaise [Unknown]
  - Dehydration [Unknown]
  - Incorrect dose administered [Unknown]
  - Circumstance or information capable of leading to medication error [Unknown]
